FAERS Safety Report 4805499-4 (Version None)
Quarter: 2005Q4

REPORT INFORMATION
  Report Type: 
  Country: None (occurrence: None)
  Receive Date: 20051018
  Receipt Date: 20051006
  Transmission Date: 20060501
  Serious: Yes (Hospitalization)
  Sender: FDA-Public Use
  Company Number: 2005AL003884

PATIENT
  Age: 61 Year
  Sex: Female

DRUGS (13)
  1. SERAX [Suspect]
     Indication: ANXIETY
     Dosage: 50 MG; QD; PO
     Route: 048
     Dates: end: 20050709
  2. EFFEXOR XR [Suspect]
     Indication: BIPOLAR I DISORDER
     Dosage: 75 MG;QD; PO; 37.5 MG; QD; PO
     Route: 048
     Dates: start: 20050609, end: 20050708
  3. EFFEXOR XR [Suspect]
     Indication: BIPOLAR I DISORDER
     Dosage: 75 MG;QD; PO; 37.5 MG; QD; PO
     Route: 048
     Dates: start: 20050709
  4. DEPAMIDE [Suspect]
     Dosage: PO
     Route: 048
     Dates: end: 20050709
  5. LAROXYL [Suspect]
     Indication: BIPOLAR I DISORDER
     Dosage: 25 MG; QD; PO
     Route: 048
     Dates: end: 20050709
  6. LEVOTHYROX [Suspect]
     Indication: HYPOTHYROIDISM
     Dosage: 100 UG; QD; PO; 75 UG; QD; PO
     Route: 048
     Dates: start: 20050321, end: 20050709
  7. LEVOTHYROX [Suspect]
     Indication: HYPOTHYROIDISM
     Dosage: 100 UG; QD; PO; 75 UG; QD; PO
     Route: 048
     Dates: start: 20050716
  8. TERCIAN [Suspect]
     Indication: ANXIETY
     Dosage: 15 MG; QD; PO
     Route: 048
     Dates: start: 20050608, end: 20050709
  9. TAMOXIFEN [Concomitant]
  10. PIRACETAM [Concomitant]
  11. LOSARTAN POTASSIUM [Concomitant]
  12. VALPROMIDE [Concomitant]
  13. ZOLPIDEM TARTRATE [Concomitant]

REACTIONS (2)
  - CONVULSION [None]
  - HYPERTHYROIDISM [None]
